FAERS Safety Report 13353634 (Version 1)
Quarter: 2017Q1

REPORT INFORMATION
  Report Type: Spontaneous
  Country: FR (occurrence: FR)
  Receive Date: 20170321
  Receipt Date: 20170321
  Transmission Date: 20170429
  Serious: Yes (Hospitalization)
  Sender: FDA-Public Use
  Company Number: FR-ASTRAZENECA-2017SE27706

PATIENT
  Age: 13 Year
  Sex: Male

DRUGS (2)
  1. VALIUM [Suspect]
     Active Substance: DIAZEPAM
     Indication: AGITATION
     Route: 065
     Dates: start: 2015
  2. INEXIUM [Suspect]
     Active Substance: ESOMEPRAZOLE
     Indication: PROPHYLAXIS
     Route: 048
     Dates: start: 2004, end: 201702

REACTIONS (2)
  - Hypocalcaemia [Recovered/Resolved]
  - Rickets [Not Recovered/Not Resolved]

NARRATIVE: CASE EVENT DATE: 201608
